FAERS Safety Report 20202127 (Version 1)
Quarter: 2021Q4

REPORT INFORMATION
  Report Type: Spontaneous
  Country: US (occurrence: US)
  Receive Date: 20211217
  Receipt Date: 20211217
  Transmission Date: 20220303
  Serious: Yes (Other)
  Sender: FDA-Public Use
  Company Number: US-NOVARTISPH-NVSC2021US287507

PATIENT
  Sex: Female

DRUGS (1)
  1. ITRACONAZOLE [Suspect]
     Active Substance: ITRACONAZOLE
     Indication: Vulvovaginal pain
     Dosage: 400 MG, QD
     Route: 065
     Dates: start: 20110101, end: 20171017

REACTIONS (2)
  - Seizure [Unknown]
  - Product use in unapproved indication [Unknown]
